FAERS Safety Report 12475819 (Version 3)
Quarter: 2016Q4

REPORT INFORMATION
  Report Type: Spontaneous
  Country: US (occurrence: US)
  Receive Date: 20160617
  Receipt Date: 20161102
  Transmission Date: 20170207
  Serious: Yes (Other)
  Sender: FDA-Public Use
  Company Number: US-JNJFOC-20160606465

PATIENT
  Age: 44 Year
  Sex: Female

DRUGS (6)
  1. LEVOFLOXACIN. [Suspect]
     Active Substance: LEVOFLOXACIN
     Indication: SINUSITIS
     Route: 048
     Dates: start: 20130415, end: 20130425
  2. LEVAQUIN [Suspect]
     Active Substance: LEVOFLOXACIN
     Indication: BRONCHITIS
     Route: 048
     Dates: start: 20100614, end: 20100705
  3. LEVAQUIN [Suspect]
     Active Substance: LEVOFLOXACIN
     Indication: SINUSITIS
     Route: 048
     Dates: start: 20101106, end: 20101113
  4. LEVAQUIN [Suspect]
     Active Substance: LEVOFLOXACIN
     Indication: SINUSITIS
     Route: 048
     Dates: start: 20100614, end: 20100705
  5. LEVAQUIN [Suspect]
     Active Substance: LEVOFLOXACIN
     Indication: BRONCHITIS
     Route: 048
     Dates: start: 20101106, end: 20101113
  6. LEVOFLOXACIN. [Suspect]
     Active Substance: LEVOFLOXACIN
     Indication: BRONCHITIS
     Route: 048
     Dates: start: 20130415, end: 20130425

REACTIONS (19)
  - Fatigue [Unknown]
  - Paraesthesia [Unknown]
  - Temperature intolerance [Unknown]
  - Mitochondrial cytopathy [Unknown]
  - Mental status changes [Unknown]
  - Cognitive disorder [Unknown]
  - Tendonitis [Unknown]
  - Nervous system disorder [Unknown]
  - Palpitations [Unknown]
  - Musculoskeletal pain [Unknown]
  - Neuropathy peripheral [Unknown]
  - Arthralgia [Unknown]
  - Balance disorder [Unknown]
  - Coordination abnormal [Unknown]
  - Muscle twitching [Unknown]
  - Tendon rupture [Unknown]
  - Formication [Unknown]
  - Anxiety [Unknown]
  - Gastrointestinal disorder [Unknown]

NARRATIVE: CASE EVENT DATE: 2010
